FAERS Safety Report 24316244 (Version 3)
Quarter: 2025Q3

REPORT INFORMATION
  Report Type: Report from Study
  Country: CA (occurrence: CA)
  Receive Date: 20240913
  Receipt Date: 20250906
  Transmission Date: 20251020
  Serious: Yes (Other)
  Sender: ALEXION PHARMACEUTICALS
  Company Number: 2024A147973

PATIENT
  Sex: Female

DRUGS (8)
  1. TEZEPELUMAB [Suspect]
     Active Substance: TEZEPELUMAB
     Indication: Asthma
  2. TEZEPELUMAB [Suspect]
     Active Substance: TEZEPELUMAB
  3. SULFATRIM [Concomitant]
     Active Substance: SULFAMETHOXAZOLE\TRIMETHOPRIM
     Route: 065
  4. VENTOLIN [Concomitant]
     Active Substance: ALBUTEROL SULFATE
     Route: 065
  5. SOLU-MEDROL [Concomitant]
     Active Substance: METHYLPREDNISOLONE SODIUM SUCCINATE
     Dosage: UNK, QMONTH
     Route: 065
  6. GLYCOPYRROLATE\INDACATEROL\MOMETASONE FUROATE [Concomitant]
     Active Substance: GLYCOPYRROLATE\INDACATEROL\MOMETASONE FUROATE
     Route: 065
  7. PREDNISONE [Concomitant]
     Active Substance: PREDNISONE
  8. OXYGEN [Concomitant]
     Active Substance: OXYGEN

REACTIONS (10)
  - Pancreatic carcinoma [Unknown]
  - Ovarian cancer [Unknown]
  - Mass [Unknown]
  - Headache [Unknown]
  - Burning sensation [Unknown]
  - Toothache [Unknown]
  - Radiation associated pain [Unknown]
  - Full blood count abnormal [Unknown]
  - Febrile neutropenia [Unknown]
  - Toothache [Unknown]
